FAERS Safety Report 9347860 (Version 2)
Quarter: 2013Q3

REPORT INFORMATION
  Report Type: Report from Study
  Country: US (occurrence: US)
  Receive Date: 20130614
  Receipt Date: 20130708
  Transmission Date: 20140515
  Serious: Yes (Hospitalization)
  Sender: FDA-Public Use
  Company Number: US-CELGENEUS-163-21660-13061137

PATIENT
  Age: 55 Year
  Sex: Male
  Weight: 73.4 kg

DRUGS (25)
  1. ABRAXANE [Suspect]
     Indication: COLORECTAL CANCER METASTATIC
     Route: 041
     Dates: start: 20130522
  2. ABRAXANE [Suspect]
     Route: 041
     Dates: start: 20130621
  3. NORCO [Concomitant]
     Indication: PAIN
     Dosage: 10/325
     Route: 048
     Dates: start: 20090101
  4. AUGMENTIN AMOXICILLIN [Concomitant]
     Indication: ANAL FISTULA
     Dosage: 875/125
     Route: 048
     Dates: start: 201211
  5. COLACE [Concomitant]
     Indication: CONSTIPATION
     Dosage: 200 MILLIGRAM
     Route: 048
  6. DULERA [Concomitant]
     Indication: CHRONIC OBSTRUCTIVE PULMONARY DISEASE
     Dosage: 1 PUFF
     Route: 055
     Dates: start: 19900101
  7. COMBIVENT [Concomitant]
     Indication: CHRONIC OBSTRUCTIVE PULMONARY DISEASE
     Dosage: 1-2 INH
     Route: 055
     Dates: start: 19900101
  8. COMBIVENT [Concomitant]
     Indication: DYSPNOEA
  9. COMBIVENT [Concomitant]
     Indication: DYSPNOEA
  10. LOMOTIL [Concomitant]
     Indication: DIARRHOEA
     Dosage: 2.5-0.025MG
     Route: 048
     Dates: start: 20090101
  11. LYRICA [Concomitant]
     Indication: PERIPHERAL SENSORY NEUROPATHY
     Dosage: 150 MILLIGRAM
     Route: 048
     Dates: start: 20111101
  12. METOPROLOL [Concomitant]
     Indication: HYPERTENSION
     Dosage: 50 MILLIGRAM
     Route: 048
     Dates: start: 20110301
  13. MV [Concomitant]
     Indication: SUPPLEMENTATION THERAPY
     Dosage: 1 TABLET
     Route: 048
  14. NITROGLYCERINE [Concomitant]
     Indication: DYSPNOEA
     Route: 048
     Dates: start: 201101
  15. NITROGLYCERINE [Concomitant]
     Indication: CHEST PAIN
  16. NITROGLYCERINE [Concomitant]
     Indication: ANXIETY
  17. COMPAZINE [Concomitant]
     Indication: NAUSEA
     Route: 048
     Dates: start: 20110101
  18. SINGULAIR [Concomitant]
     Indication: CHRONIC OBSTRUCTIVE PULMONARY DISEASE
     Dosage: 10 MILLIGRAM
     Route: 048
     Dates: start: 19900101
  19. TRAMADOL [Concomitant]
     Indication: PAIN
     Route: 048
     Dates: start: 20110101
  20. ZOFRAN [Concomitant]
     Indication: NAUSEA
     Route: 048
     Dates: start: 20110101
  21. ZOFRAN [Concomitant]
     Indication: PREMEDICATION
     Route: 041
     Dates: start: 20130522
  22. DAYQUIL [Concomitant]
     Indication: COUGH
     Dosage: 32 MILLIGRAM
     Route: 048
     Dates: start: 20130101
  23. NEULASTA [Concomitant]
     Indication: PROPHYLAXIS
     Route: 058
     Dates: start: 20130523
  24. DEXAMETHASONE [Concomitant]
     Indication: PREMEDICATION
     Route: 041
     Dates: start: 20130522
  25. ONDANSETRON [Concomitant]
     Indication: PREMEDICATION
     Route: 041
     Dates: start: 20130522

REACTIONS (1)
  - Perirectal abscess [Recovered/Resolved]
